FAERS Safety Report 7121050-0 (Version None)
Quarter: 2010Q4

REPORT INFORMATION
  Report Type: 
  Country: None (occurrence: None)
  Receive Date: 20101124
  Receipt Date: 20101116
  Transmission Date: 20110411
  Serious: Yes (Death, Other)
  Sender: FDA-Public Use
  Company Number: JP-JNJFOC-20101004227

PATIENT
  Age: 60 Year
  Sex: Male

DRUGS (1)
  1. DUROTEP MT [Suspect]
     Indication: CANCER PAIN
     Route: 062

REACTIONS (4)
  - APPLICATION SITE PAIN [None]
  - DELIRIUM [None]
  - RECTAL CANCER [None]
  - TREATMENT NONCOMPLIANCE [None]
